FAERS Safety Report 25169670 (Version 2)
Quarter: 2025Q2

REPORT INFORMATION
  Report Type: Spontaneous
  Country: FR (occurrence: FR)
  Receive Date: 20250407
  Receipt Date: 20250408
  Transmission Date: 20250716
  Serious: Yes (Death, Hospitalization)
  Sender: PFIZER
  Company Number: None

PATIENT
  Age: 80 Year
  Sex: Female
  Weight: 70 kg

DRUGS (8)
  1. METHOTREXATE SODIUM [Suspect]
     Active Substance: METHOTREXATE SODIUM
     Route: 042
     Dates: start: 20100928, end: 20100928
  2. METHOTREXATE SODIUM [Suspect]
     Active Substance: METHOTREXATE SODIUM
     Route: 042
     Dates: start: 20101110, end: 20101110
  3. CYTARABINE [Suspect]
     Active Substance: CYTARABINE
     Route: 037
     Dates: start: 20101005, end: 20101005
  4. CYTARABINE [Suspect]
     Active Substance: CYTARABINE
     Route: 037
     Dates: start: 20101020, end: 20101020
  5. CYTARABINE [Suspect]
     Active Substance: CYTARABINE
     Route: 037
     Dates: start: 20101113, end: 20101113
  6. TEMOZOLOMIDE [Suspect]
     Active Substance: TEMOZOLOMIDE
     Dosage: 140 MG, 1X/DAY
     Route: 048
     Dates: start: 20100928, end: 20101002
  7. TEMOZOLOMIDE [Suspect]
     Active Substance: TEMOZOLOMIDE
     Dosage: 140 MG, 1X/DAY
     Route: 048
     Dates: start: 20101110, end: 20101114
  8. ONDANSETRON [Suspect]
     Active Substance: ONDANSETRON
     Dosage: 1 DF, 1X/DAY
     Route: 042
     Dates: start: 20101110, end: 20101114

REACTIONS (10)
  - Erythema [Fatal]
  - Rash macular [Fatal]
  - Dyspnoea [Fatal]
  - Face oedema [Fatal]
  - Oral mucosal exfoliation [Fatal]
  - Vulval oedema [Fatal]
  - Acute respiratory failure [Fatal]
  - Toxic epidermal necrolysis [Fatal]
  - Dysphagia [Fatal]
  - Sepsis [Fatal]

NARRATIVE: CASE EVENT DATE: 20101115
